FAERS Safety Report 4381204-3 (Version None)
Quarter: 2004Q2

REPORT INFORMATION
  Report Type: 
  Country: None (occurrence: None)
  Receive Date: 20040614
  Receipt Date: 20040528
  Transmission Date: 20050107
  Serious: Yes (Hospitalization, Other)
  Sender: FDA-Public Use
  Company Number: URSO2004-006

PATIENT
  Age: 23 Year
  Sex: Female

DRUGS (2)
  1. URSO [Suspect]
     Indication: CHOLESTASIS OF PREGNANCY
     Dosage: 750 MG
     Route: 048
     Dates: start: 20020723, end: 20020725
  2. ... [Concomitant]

REACTIONS (3)
  - HYPOTENSION [None]
  - PRURITUS [None]
  - RASH ERYTHEMATOUS [None]
